FAERS Safety Report 5830940-8 (Version None)
Quarter: 2008Q3

REPORT INFORMATION
  Report Type: 
  Country: None (occurrence: None)
  Receive Date: 20080801
  Receipt Date: 20080303
  Transmission Date: 20090109
  Serious: No
  Sender: FDA-Public Use
  Company Number: US-BRISTOL-MYERS SQUIBB COMPANY-14077358

PATIENT
  Age: 69 Year
  Sex: Male

DRUGS (11)
  1. COUMADIN [Suspect]
  2. SOTALOL HCL [Suspect]
  3. LOVAZA [Suspect]
     Dates: start: 20071101, end: 20080129
  4. TOPROL-XL [Suspect]
  5. ZOCOR [Suspect]
  6. RYTHMOL [Suspect]
     Indication: ATRIAL FIBRILLATION
     Dates: start: 20071101, end: 20080119
  7. ZOLOFT [Suspect]
  8. PROPECIA [Concomitant]
  9. PLAVIX [Concomitant]
  10. ZETIA [Concomitant]
  11. ASPIRIN [Concomitant]

REACTIONS (1)
  - ALOPECIA [None]
